FAERS Safety Report 7415603-X (Version None)
Quarter: 2011Q2

REPORT INFORMATION
  Report Type: 
  Country: None (occurrence: None)
  Receive Date: 20110414
  Receipt Date: 20110404
  Transmission Date: 20111010
  Serious: Yes (Hospitalization)
  Sender: FDA-Public Use
  Company Number: US-BAXTER-2011BH008905

PATIENT
  Age: 45 Year
  Sex: Male

DRUGS (1)
  1. DIANEAL [Suspect]
     Indication: PERITONEAL DIALYSIS
     Route: 033

REACTIONS (6)
  - BRONCHITIS [None]
  - ULCER HAEMORRHAGE [None]
  - HAEMATURIA [None]
  - MALAISE [None]
  - ANAEMIA [None]
  - GOUT [None]
